FAERS Safety Report 10877134 (Version 2)
Quarter: 2015Q1

REPORT INFORMATION
  Report Type: Spontaneous
  Country: IT (occurrence: IT)
  Receive Date: 20150302
  Receipt Date: 20150312
  Transmission Date: 20150721
  Serious: Yes (Hospitalization)
  Sender: FDA-Public Use
  Company Number: IT-TEVA-543890ACC

PATIENT
  Age: 31 Year
  Sex: Female

DRUGS (2)
  1. ALPRAZOLAM. [Suspect]
     Active Substance: ALPRAZOLAM
     Indication: INTENTIONAL SELF-INJURY
     Dosage: 75 MG TOTAL
     Route: 048
     Dates: start: 20150101, end: 20150101
  2. DAPAROX - 33,1 MG/ML GOCCE ORALI, SOLUZIONE - SYNTHON BV [Suspect]
     Active Substance: PAROXETINE HYDROCHLORIDE
     Indication: INTENTIONAL SELF-INJURY
     Dosage: 18.5 ML TOTAL, SOLUTION
     Route: 048
     Dates: start: 20150101, end: 20150101

REACTIONS (3)
  - Intentional self-injury [Unknown]
  - Sopor [Unknown]
  - Drug abuse [Unknown]

NARRATIVE: CASE EVENT DATE: 20150101
